FAERS Safety Report 8117917-7 (Version None)
Quarter: 2012Q1

REPORT INFORMATION
  Report Type: 
  Country: None (occurrence: None)
  Receive Date: 20120131
  Receipt Date: 20120116
  Transmission Date: 20120608
  Serious: Yes (Hospitalization, Other)
  Sender: FDA-Public Use
  Company Number: NSR_00475_2012

PATIENT
  Age: 15 Year
  Sex: Male

DRUGS (1)
  1. LAMOTRIGINE [Suspect]
     Indication: PRODUCT USED FOR UNKNOWN INDICATION
     Dosage: (DF)

REACTIONS (6)
  - CONJUNCTIVAL HYPERAEMIA [None]
  - TOXIC EPIDERMAL NECROLYSIS [None]
  - SYMBLEPHARON [None]
  - EYELID OEDEMA [None]
  - DACRYOSTENOSIS ACQUIRED [None]
  - OCULAR DISCOMFORT [None]
